FAERS Safety Report 6768674-8 (Version None)
Quarter: 2010Q2

REPORT INFORMATION
  Report Type: 
  Country: None (occurrence: None)
  Receive Date: 20100614
  Receipt Date: 20100531
  Transmission Date: 20101027
  Serious: Yes (Hospitalization)
  Sender: FDA-Public Use
  Company Number: GB-WATSON-2010-07804

PATIENT
  Age: 11 Year
  Sex: Female

DRUGS (1)
  1. PREDNISOLONE [Suspect]
     Indication: T-CELL TYPE ACUTE LEUKAEMIA
     Dosage: 12 MG, SINGLE
     Route: 048

REACTIONS (1)
  - TUMOUR LYSIS SYNDROME [None]
